FAERS Safety Report 13461112 (Version 7)
Quarter: 2017Q4

REPORT INFORMATION
  Report Type: Spontaneous
  Country: US (occurrence: US)
  Receive Date: 20170420
  Receipt Date: 20171006
  Transmission Date: 20180320
  Serious: Yes (Hospitalization, Congenital Anomaly, Other)
  Sender: FDA-Public Use
  Company Number: PHEH2017US011405

PATIENT
  Sex: Male

DRUGS (1)
  1. ZOFRAN [Suspect]
     Active Substance: ONDANSETRON HYDROCHLORIDE
     Indication: FOETAL EXPOSURE DURING PREGNANCY
     Dosage: MOTHER DOSE: 1 DF, Q6H
     Route: 064

REACTIONS (17)
  - Talipes [Not Recovered/Not Resolved]
  - Foetal exposure during pregnancy [Unknown]
  - Abdominal pain [Unknown]
  - Otitis media chronic [Unknown]
  - Premature baby [Unknown]
  - Encopresis [Unknown]
  - Infantile apnoea [Unknown]
  - Language disorder [Unknown]
  - Constipation [Unknown]
  - Gross motor delay [Unknown]
  - Lung hyperinflation [Unknown]
  - Deafness [Unknown]
  - Respiratory disorder [Unknown]
  - Adenoidal hypertrophy [Unknown]
  - Tonsillar hypertrophy [Unknown]
  - Ear infection [Unknown]
  - Gastric dilatation [Unknown]

NARRATIVE: CASE EVENT DATE: 20030520
